FAERS Safety Report 5811174-X (Version None)
Quarter: 2008Q3

REPORT INFORMATION
  Report Type: 
  Country: None (occurrence: None)
  Receive Date: 20080716
  Receipt Date: 20080707
  Transmission Date: 20090109
  Serious: Yes (Other)
  Sender: FDA-Public Use
  Company Number: US-JNJFOC-20080102820

PATIENT
  Sex: Female
  Weight: 76.43 kg

DRUGS (2)
  1. DOXIL [Suspect]
     Dosage: 2ND  TREATMENT
     Route: 042
  2. DOXIL [Suspect]
     Indication: OVARIAN CANCER
     Dosage: 1ST TREATMENT
     Route: 042

REACTIONS (2)
  - BREAST CANCER [None]
  - OVARIAN CANCER [None]
